FAERS Safety Report 12809023 (Version 2)
Quarter: 2016Q4

REPORT INFORMATION
  Report Type: Report from Study
  Country: US (occurrence: US)
  Receive Date: 20161004
  Receipt Date: 20161104
  Transmission Date: 20170207
  Serious: Yes (Hospitalization)
  Sender: FDA-Public Use
  Company Number: US-ACTELION-A-US2016-139083

PATIENT
  Age: 42 Year
  Sex: Female
  Weight: 61.22 kg

DRUGS (3)
  1. OPSUMIT [Suspect]
     Active Substance: MACITENTAN
     Indication: PULMONARY HYPERTENSION
     Dosage: 10 MG, QD
     Route: 048
     Dates: start: 20160113
  2. COUMADIN [Concomitant]
     Active Substance: WARFARIN SODIUM
  3. ORENITRAM [Suspect]
     Active Substance: TREPROSTINIL
     Indication: PULMONARY HYPERTENSION
     Dosage: 22 MG, TID
     Route: 048
     Dates: start: 20150529

REACTIONS (7)
  - Respiratory distress [Unknown]
  - Feeling abnormal [Unknown]
  - Bronchitis [Unknown]
  - Chest discomfort [Unknown]
  - Productive cough [Unknown]
  - Drowning [Unknown]
  - Nasopharyngitis [Unknown]

NARRATIVE: CASE EVENT DATE: 2016
